FAERS Safety Report 9854847 (Version 3)
Quarter: 2014Q1

REPORT INFORMATION
  Report Type: Spontaneous
  Country: US (occurrence: US)
  Receive Date: 20140130
  Receipt Date: 20140203
  Transmission Date: 20141002
  Serious: Yes (Other)
  Sender: FDA-Public Use
  Company Number: US-BEH-2012031456

PATIENT
  Sex: Female
  Weight: 83 kg

DRUGS (43)
  1. HIZENTRA [Suspect]
     Indication: IMMUNODEFICIENCY COMMON VARIABLE
     Dosage: 4 GM (20ML) ON ULTIPLE SITES
     Route: 058
  2. HIZENTRA [Suspect]
     Dosage: MULTIPLE SITES OVER 1-3 HOURS
     Route: 058
     Dates: start: 20121227, end: 20121227
  3. HIZENTRA [Suspect]
     Dosage: MULTIPLE SITES OVER 1-3 HOURS
     Route: 058
     Dates: start: 20121227, end: 20121227
  4. HIZENTRA [Suspect]
     Dosage: 1 GM 5 ML VIAL; MULTIPLE SITES OVER 1-3 HOURS
     Route: 058
  5. HIZENTRA [Suspect]
     Dosage: 4 GM 20 ML VIAL;MULTIPLE SITES OVER 1-3 HOURS
     Route: 058
  6. LIPITOR [Concomitant]
  7. KLONOPIN [Concomitant]
  8. DIFLUCAN [Concomitant]
  9. NORTRIPTYLINE HYDROCHLORIDE [Concomitant]
  10. VAGIFEM [Concomitant]
  11. ESTRADIOL [Concomitant]
  12. LEXAPRO [Concomitant]
  13. ACIPHEX [Concomitant]
  14. MORPHINE [Concomitant]
  15. AUGMENTIN [Concomitant]
  16. CARAFATE [Concomitant]
  17. ELIDEL [Concomitant]
  18. OS-CAL [Concomitant]
  19. FERROUS SULFATE [Concomitant]
  20. MULTIVITAMIN [Concomitant]
  21. MIRALAX [Concomitant]
  22. VITAMIN B-12 [Concomitant]
  23. COLACE [Concomitant]
  24. QVAR [Concomitant]
  25. METOPROLOL [Concomitant]
  26. VERAPAMIL [Concomitant]
  27. LORTAB [Concomitant]
  28. LEVOTHYROXINE [Concomitant]
  29. AMBIEN [Concomitant]
  30. CYCLOBENZAPRINE [Concomitant]
  31. NORETHINDRONE [Concomitant]
  32. ZYRTEC [Concomitant]
  33. MAGNESIUM OXIDE [Concomitant]
  34. SINGULAIR [Concomitant]
  35. ASTELIN [Concomitant]
  36. LIDODERM [Concomitant]
  37. XOPENEX [Concomitant]
  38. DIPHENHYDRAMINE [Concomitant]
     Indication: PREMEDICATION
  39. LIDOCAINE/PRILOCAINE [Concomitant]
     Indication: PREMEDICATION
  40. EPI-PEN [Concomitant]
     Indication: PREMEDICATION
  41. LMX [Concomitant]
     Indication: PREMEDICATION
  42. CLARITHROMYCIN [Concomitant]
  43. AMOXICILLIN [Concomitant]

REACTIONS (4)
  - Haemorrhagic diathesis [Unknown]
  - Skin atrophy [Unknown]
  - Increased tendency to bruise [Unknown]
  - Infusion site urticaria [Unknown]
